FAERS Safety Report 6295822-9 (Version None)
Quarter: 2009Q3

REPORT INFORMATION
  Report Type: 
  Country: None (occurrence: None)
  Receive Date: 20090804
  Receipt Date: 20090722
  Transmission Date: 20100115
  Serious: Yes (Hospitalization, Other)
  Sender: FDA-Public Use
  Company Number: JP-PFIZER INC-2009236368

PATIENT
  Age: 38 Year

DRUGS (6)
  1. SOLU-MEDROL [Suspect]
     Dosage: 1000 MG, 1X/DAY
     Route: 042
     Dates: start: 20060812, end: 20060814
  2. SOLU-MEDROL [Suspect]
     Dosage: 1000 MG, 1X/DAY
     Dates: start: 20060821, end: 20060823
  3. SOLU-MEDROL [Suspect]
     Dosage: 1000 MG, 1X/DAY
     Dates: start: 20060830, end: 20060901
  4. NEUROTROPIN [Suspect]
     Dates: start: 20060901
  5. MYSLEE [Concomitant]
     Dates: start: 20060912, end: 20070409
  6. RIZE [Concomitant]
     Dates: start: 20060912, end: 20060914

REACTIONS (1)
  - HEPATIC FUNCTION ABNORMAL [None]
